FAERS Safety Report 18450470 (Version 1)
Quarter: 2020Q4

REPORT INFORMATION
  Report Type: Spontaneous
  Country: ES (occurrence: ES)
  Receive Date: 20201102
  Receipt Date: 20201102
  Transmission Date: 20210114
  Serious: Yes (Other)
  Sender: FDA-Public Use
  Company Number: ES-SUN PHARMACEUTICAL INDUSTRIES LTD-2020RR-265793

PATIENT
  Age: 80 Year
  Sex: Female

DRUGS (5)
  1. APIXABAN (8472A) [Concomitant]
     Active Substance: APIXABAN
     Indication: ATRIAL FIBRILLATION
     Dosage: UNK
     Route: 065
  2. PREGABALIN. [Suspect]
     Active Substance: PREGABALIN
     Indication: TRIGEMINAL NEURALGIA
     Dosage: COMIENZA CON DOSIS DE 75 MG /12 H Y SE REDUCE , AUNQUE NO SE ESPECIFICA LA DOSIS ACTUAL ()
     Route: 048
     Dates: start: 20181029
  3. CARBAMAZEPINA (561A) [Suspect]
     Active Substance: CARBAMAZEPINE
     Indication: TRIGEMINAL NEURALGIA
     Dosage: CCOMIENZA CON 200MG /12 H.  Y SE REDUCE LA DOSIS , NO SE CONOCE LA DOSIS ACTUAL ()
     Route: 048
     Dates: start: 20181210
  4. SIMVASTATINA (1023A) [Concomitant]
     Active Substance: SIMVASTATIN
     Indication: PRODUCT USED FOR UNKNOWN INDICATION
     Dosage: UNK
     Route: 065
  5. BISOPROLOL (2328A) [Concomitant]
     Active Substance: BISOPROLOL
     Indication: PRODUCT USED FOR UNKNOWN INDICATION
     Dosage: UNK
     Route: 065

REACTIONS (2)
  - Syncope [Recovered/Resolved]
  - Bradycardia [Recovered/Resolved]

NARRATIVE: CASE EVENT DATE: 20200103
